FAERS Safety Report 24305137 (Version 1)
Quarter: 2024Q3

REPORT INFORMATION
  Report Type: Report from Study
  Country: CA (occurrence: None)
  Receive Date: 20240911
  Receipt Date: 20240911
  Transmission Date: 20241017
  Serious: Yes (Hospitalization)
  Sender: ASTRAZENECA
  Company Number: 2024A204501

PATIENT
  Sex: Male

DRUGS (4)
  1. TEZSPIRE [Suspect]
     Active Substance: TEZEPELUMAB-EKKO
     Indication: Asthma
     Dosage: 210.0MG UNKNOWN
     Route: 058
     Dates: start: 20230303
  2. TRELEGY ELLIPTA [Concomitant]
     Active Substance: FLUTICASONE FUROATE\UMECLIDINIUM BROMIDE\VILANTEROL TRIFENATATE
     Dosage: 200MCG 2 INH BID
  3. SPIRIVA RESPIMAT [Concomitant]
     Active Substance: TIOTROPIUM BROMIDE
     Dosage: 2.5 MCG 2 INH QD
  4. BREO ELLIPTA [Concomitant]
     Active Substance: FLUTICASONE FUROATE\VILANTEROL TRIFENATATE
     Dosage: 200 (1 IN) BID

REACTIONS (4)
  - Diabetic ketoacidosis [Unknown]
  - Autoimmune pancreatitis [Unknown]
  - Inappropriate schedule of product administration [Unknown]
  - Product distribution issue [Unknown]
